FAERS Safety Report 25192647 (Version 2)
Quarter: 2025Q3

REPORT INFORMATION
  Report Type: Report from Study
  Country: US (occurrence: US)
  Receive Date: 20250414
  Receipt Date: 20250707
  Transmission Date: 20251021
  Serious: No
  Sender: TAKEDA
  Company Number: US-TAKEDA-US202026836

PATIENT
  Age: 46 Year
  Sex: Female
  Weight: 97 kg

DRUGS (24)
  1. HUMAN IMMUNOGLOBULIN G\HYALURONIDASE RECOMBINANT HUMAN [Suspect]
     Active Substance: HUMAN IMMUNOGLOBULIN G\HYALURONIDASE (HUMAN RECOMBINANT)
     Indication: Immunodeficiency common variable
     Dosage: 40 GRAM, Q4WEEKS
  2. HUMAN IMMUNOGLOBULIN G\HYALURONIDASE RECOMBINANT HUMAN [Suspect]
     Active Substance: HUMAN IMMUNOGLOBULIN G\HYALURONIDASE (HUMAN RECOMBINANT)
     Dosage: 40 GRAM, Q4WEEKS
     Dates: start: 20190829
  3. HUMAN IMMUNOGLOBULIN G\HYALURONIDASE RECOMBINANT HUMAN [Suspect]
     Active Substance: HUMAN IMMUNOGLOBULIN G\HYALURONIDASE (HUMAN RECOMBINANT)
     Dosage: 40 GRAM, Q4WEEKS
  4. ALEVE [Suspect]
     Active Substance: NAPROXEN SODIUM
     Indication: Cough
  5. ALEVE [Suspect]
     Active Substance: NAPROXEN SODIUM
     Indication: Oropharyngeal pain
  6. DIPHENHYDRAMINE [Concomitant]
     Active Substance: DIPHENHYDRAMINE
  7. EPINEPHRINE [Concomitant]
     Active Substance: EPINEPHRINE
  8. MUCINEX D [Concomitant]
     Active Substance: GUAIFENESIN\PSEUDOEPHEDRINE HYDROCHLORIDE
  9. LIDOCAINE\PRILOCAINE [Concomitant]
     Active Substance: LIDOCAINE\PRILOCAINE
  10. CEFADROXIL [Concomitant]
     Active Substance: CEFADROXIL
  11. ACETAMINOPHEN [Concomitant]
     Active Substance: ACETAMINOPHEN
  12. BOTOX [Concomitant]
     Active Substance: ONABOTULINUMTOXINA
  13. SODIUM CHLORIDE [Concomitant]
     Active Substance: SODIUM CHLORIDE
  14. CYANOCOBALAMIN\DEXPANTHENOL\NIACINAMIDE\PYRIDOXINE HYDROCHLORIDE\RIBOF [Concomitant]
     Active Substance: CYANOCOBALAMIN\DEXPANTHENOL\NIACINAMIDE\PYRIDOXINE HYDROCHLORIDE\RIBOFLAVIN 5^-PHOSPHATE SODIUM\THIA
  15. GLYCOPYRROLATE [Concomitant]
     Active Substance: GLYCOPYRROLATE
  16. ADEMETIONINE [Concomitant]
     Active Substance: ADEMETIONINE
  17. BLACK COHOSH [Concomitant]
     Active Substance: BLACK COHOSH
  18. Lmx [Concomitant]
  19. TAMOXIFEN CITRATE [Concomitant]
     Active Substance: TAMOXIFEN CITRATE
  20. ASCORBIC ACID\IRON [Concomitant]
     Active Substance: ASCORBIC ACID\IRON
  21. L-threonine [Concomitant]
  22. TAMOXIFEN [Concomitant]
     Active Substance: TAMOXIFEN
  23. COLLAGEN [Concomitant]
     Active Substance: COLLAGEN
  24. DIPHENHYDRAMINE HYDROCHLORIDE [Concomitant]
     Active Substance: DIPHENHYDRAMINE HYDROCHLORIDE

REACTIONS (17)
  - Sinusitis [Unknown]
  - Bronchitis [Unknown]
  - Seasonal allergy [Unknown]
  - Ulcer [Unknown]
  - Product use issue [Unknown]
  - Insurance issue [Unknown]
  - Lichen planus [Unknown]
  - Infusion related reaction [Unknown]
  - Weight increased [Unknown]
  - Dyspepsia [Unknown]
  - Hypersensitivity [Unknown]
  - Cough [Unknown]
  - Oropharyngeal pain [Unknown]
  - Conjunctivitis [Unknown]
  - Infusion site haemorrhage [Unknown]
  - Malaise [Unknown]
  - Tooth infection [Recovered/Resolved]

NARRATIVE: CASE EVENT DATE: 20210501
